FAERS Safety Report 21373835 (Version 1)
Quarter: 2022Q3

REPORT INFORMATION
  Report Type: Spontaneous
  Country: NL (occurrence: NL)
  Receive Date: 20220926
  Receipt Date: 20220926
  Transmission Date: 20221026
  Serious: Yes (Hospitalization, Other)
  Sender: FDA-Public Use
  Company Number: NL-LRB-00829536

PATIENT
  Sex: Female
  Weight: 65 kg

DRUGS (5)
  1. DULOXETINE [Suspect]
     Active Substance: DULOXETINE
     Indication: Neuralgia
     Dosage: 60 MILLIGRAM, ONCE A DAY (1 X PER DAG 1 STUK)
     Route: 065
     Dates: start: 20200210
  2. TRAMADOL HYDROCHLORIDE [Suspect]
     Active Substance: TRAMADOL HYDROCHLORIDE
     Indication: Pain
     Dosage: 50 MILLIGRAM, TWO TIMES A DAY (2 X PER DAG 1 STUK)
     Route: 065
     Dates: start: 20210101, end: 20210108
  3. MOVICOLON [Concomitant]
     Active Substance: POLYETHYLENE GLYCOL 3350\POTASSIUM CHLORIDE\SODIUM BICARBONATE\SODIUM CHLORIDE
     Indication: Product used for unknown indication
     Dosage: UNK (POEDER VOOR DRANK)
     Route: 065
  4. NAPROXEN [Concomitant]
     Active Substance: NAPROXEN
     Indication: Product used for unknown indication
     Dosage: 500 MILLIGRAM
     Route: 065
  5. OMEPRAZOLE [Concomitant]
     Active Substance: OMEPRAZOLE
     Indication: Product used for unknown indication
     Dosage: 20 MILLIGRAM
     Route: 065

REACTIONS (1)
  - Loss of consciousness [Recovering/Resolving]
